FAERS Safety Report 14687503 (Version 2)
Quarter: 2018Q2

REPORT INFORMATION
  Report Type: Report from Study
  Country: None (occurrence: US)
  Receive Date: 20180328
  Receipt Date: 20180416
  Transmission Date: 20180711
  Serious: Yes (Other)
  Sender: FDA-Public Use
  Company Number: US-ABBVIE-18K-163-2292863-00

PATIENT
  Age: 59 Year
  Sex: Male
  Weight: 111.23 kg

DRUGS (7)
  1. TOBRADEX [Concomitant]
     Active Substance: DEXAMETHASONE\TOBRAMYCIN
     Indication: PROPHYLAXIS
     Dates: start: 20180222, end: 20180224
  2. IRBESARTAN. [Concomitant]
     Active Substance: IRBESARTAN
     Indication: HYPERTENSION
  3. GATIFLOXACIN. [Concomitant]
     Active Substance: GATIFLOXACIN
     Indication: PROPHYLAXIS
     Dates: start: 20180222, end: 20180301
  4. HUMIRA [Suspect]
     Active Substance: ADALIMUMAB
     Indication: ANKYLOSING SPONDYLITIS
     Route: 058
     Dates: start: 2010
  5. TOBRADEX [Concomitant]
     Active Substance: DEXAMETHASONE\TOBRAMYCIN
     Dates: start: 20180308, end: 20180310
  6. TYLENOL [Concomitant]
     Active Substance: ACETAMINOPHEN
     Indication: ARTHRALGIA
  7. GATIFLOXACIN. [Concomitant]
     Active Substance: GATIFLOXACIN
     Indication: PROPHYLAXIS
     Dates: start: 20180308, end: 20180315

REACTIONS (10)
  - Cataract [Recovering/Resolving]
  - Eye haemorrhage [Recovering/Resolving]
  - Post procedural swelling [Recovering/Resolving]
  - Cataract [Recovered/Resolved]
  - Retinal tear [Recovered/Resolved]
  - Post procedural swelling [Recovered/Resolved]
  - Procedural pain [Recovering/Resolving]
  - Procedural pain [Recovering/Resolving]
  - Glaucoma [Recovering/Resolving]
  - Visual impairment [Not Recovered/Not Resolved]

NARRATIVE: CASE EVENT DATE: 2015
